FAERS Safety Report 25771770 (Version 1)
Quarter: 2025Q3

REPORT INFORMATION
  Report Type: Spontaneous
  Country: TR (occurrence: TR)
  Receive Date: 20250908
  Receipt Date: 20250908
  Transmission Date: 20251021
  Serious: Yes (Other)
  Sender: MARKSANS PHARMA LIMITED
  Company Number: TR-MARKSANS PHARMA LIMITED-MPL202500085

PATIENT

DRUGS (6)
  1. IBUPROFEN [Suspect]
     Active Substance: IBUPROFEN
     Indication: Upper respiratory tract infection
     Route: 065
     Dates: start: 20240109, end: 20240113
  2. IBUPROFEN [Suspect]
     Active Substance: IBUPROFEN
     Route: 065
     Dates: start: 20240113
  3. CEFUROXIME [Suspect]
     Active Substance: CEFUROXIME
     Indication: Upper respiratory tract infection
     Route: 065
     Dates: start: 20240109
  4. AMOXICILLIN\CLAVULANIC ACID [Suspect]
     Active Substance: AMOXICILLIN\CLAVULANIC ACID
     Indication: Upper respiratory tract infection
     Route: 065
     Dates: start: 20240113
  5. PSEUDOEPHEDRINE HYDROCHLORIDE [Suspect]
     Active Substance: PSEUDOEPHEDRINE HYDROCHLORIDE
     Indication: Upper respiratory tract infection
     Route: 065
     Dates: start: 20240113
  6. CHLORPHENIRAMINE MALEATE [Suspect]
     Active Substance: CHLORPHENIRAMINE MALEATE
     Indication: Upper respiratory tract infection
     Route: 065
     Dates: start: 20240113

REACTIONS (3)
  - Condition aggravated [Recovered/Resolved]
  - Delusion of replacement [Recovered/Resolved]
  - Product use in unapproved indication [Unknown]

NARRATIVE: CASE EVENT DATE: 20240113
